FAERS Safety Report 8714676 (Version 3)
Quarter: 2012Q4

REPORT INFORMATION
  Report Type: Report from Study
  Country: JP (occurrence: JP)
  Receive Date: 20120809
  Receipt Date: 20121019
  Transmission Date: 20130627
  Serious: Yes (Death, Hospitalization, Other)
  Sender: FDA-Public Use
  Company Number: PHHY2012JP068205

PATIENT
  Age: 75 Year
  Sex: Male
  Weight: 60 kg

DRUGS (10)
  1. ICL670A [Suspect]
     Indication: IRON OVERLOAD
     Dosage: 1000 mg, daily
     Route: 048
     Dates: start: 20081030, end: 20081103
  2. ICL670A [Suspect]
     Dosage: 1000 mg, daily
     Route: 048
     Dates: start: 20081113, end: 20090118
  3. ICL670A [Suspect]
     Dosage: 500 mg,daily
     Route: 048
     Dates: start: 20090119, end: 20090131
  4. ICL670A [Suspect]
     Dosage: 1000 mg, daily
     Route: 048
     Dates: start: 20100201, end: 20100425
  5. ICL670A [Suspect]
     Dosage: 1000 mg, daily
     Route: 048
     Dates: start: 20100506, end: 20100517
  6. AMBISOME [Suspect]
     Dosage: 1500 mg,  daily
     Route: 048
     Dates: start: 20100316, end: 20100422
  7. GENINAX [Suspect]
     Dosage: 400 mg, daily
     Dates: start: 20100422, end: 20100426
  8. SELBEX [Concomitant]
     Indication: PROPHYLAXIS
     Dosage: 150 mg, UNK
     Route: 048
     Dates: start: 2008
  9. CONIEL [Concomitant]
     Indication: HYPERTENSION
     Dosage: 4 mg, UNK
     Route: 048
  10. GASTER [Concomitant]
     Indication: HYPERTENSION
     Dosage: 20 mg, UNK
     Route: 048
     Dates: start: 20090828, end: 20090916

REACTIONS (9)
  - Fall [Fatal]
  - Cerebral haemorrhage [Fatal]
  - Pneumonia [Recovering/Resolving]
  - Ileus [Recovered/Resolved]
  - Transaminases increased [Recovering/Resolving]
  - Protein urine present [Recovered/Resolved]
  - Visual field defect [Recovered/Resolved]
  - Vision blurred [Unknown]
  - Dizziness [Recovered/Resolved]
